FAERS Safety Report 8788287 (Version 1)
Quarter: 2012Q4

REPORT INFORMATION
  Report Type: 
  Country: US (occurrence: US)
  Receive Date: 20120914
  Receipt Date: 20120914
  Transmission Date: 20130627
  Serious: No
  Sender: FDA-Public Use
  Company Number: US-VERTEX PHARMACEUTICAL INC.-AE-2012-010681

PATIENT
  Age: 60 Year
  Sex: Male

DRUGS (4)
  1. INCIVEK [Suspect]
     Indication: HEPATITIS C
     Route: 048
     Dates: start: 20120525
  2. RIBAVIRIN [Concomitant]
     Indication: HEPATITIS C
     Route: 048
     Dates: start: 20120525
  3. RIBAVIRIN [Concomitant]
     Route: 048
  4. PEGYLATED INTERFERON [Concomitant]
     Indication: HEPATITIS C
     Route: 058
     Dates: start: 20120525

REACTIONS (2)
  - Rash pustular [Not Recovered/Not Resolved]
  - Anaemia [Unknown]
